FAERS Safety Report 13386653 (Version 1)
Quarter: 2017Q1

REPORT INFORMATION
  Report Type: Spontaneous
  Country: US (occurrence: US)
  Receive Date: 20170330
  Receipt Date: 20170330
  Transmission Date: 20170429
  Serious: No
  Sender: FDA-Public Use
  Company Number: US-PFIZER INC-2017134959

PATIENT
  Sex: Female

DRUGS (2)
  1. WAL ZYR NOS [Suspect]
     Active Substance: CETIRIZINE HYDROCHLORIDE OR KETOTIFEN FUMARATE
     Indication: NASOPHARYNGITIS
     Dosage: UNK
  2. TESSALON [Suspect]
     Active Substance: BENZONATATE
     Indication: COUGH
     Dosage: UNK

REACTIONS (1)
  - Somnolence [Unknown]
